FAERS Safety Report 16023096 (Version 3)
Quarter: 2019Q2

REPORT INFORMATION
  Report Type: Spontaneous
  Country: US (occurrence: US)
  Receive Date: 20190301
  Receipt Date: 20190411
  Transmission Date: 20190711
  Serious: No
  Sender: FDA-Public Use
  Company Number: US-AMGEN-USASP2019030269

PATIENT
  Age: 75 Year
  Sex: Female
  Weight: 66.21 kg

DRUGS (1)
  1. REPATHA [Suspect]
     Active Substance: EVOLOCUMAB
     Indication: BLOOD CHOLESTEROL INCREASED
     Dosage: 140 MG, UNK
     Route: 065
     Dates: start: 201803

REACTIONS (4)
  - Pruritus [Unknown]
  - Rhinorrhoea [Unknown]
  - Cough [Unknown]
  - Product storage error [Unknown]

NARRATIVE: CASE EVENT DATE: 201803
